FAERS Safety Report 13855308 (Version 2)
Quarter: 2017Q4

REPORT INFORMATION
  Report Type: Spontaneous
  Country: US (occurrence: US)
  Receive Date: 20170810
  Receipt Date: 20171207
  Transmission Date: 20180320
  Serious: No
  Sender: FDA-Public Use
  Company Number: US-VIFOR (INTERNATIONAL) INC.-VIT-2017-04561

PATIENT
  Age: 31 Year
  Sex: Female

DRUGS (10)
  1. IRON [Concomitant]
     Active Substance: IRON
  2. CARVEDILOL. [Concomitant]
     Active Substance: CARVEDILOL
  3. COLECALCIFEROL [Concomitant]
     Active Substance: CHOLECALCIFEROL
  4. LOSARTAN POTASSIUM. [Concomitant]
     Active Substance: LOSARTAN POTASSIUM
  5. VELTASSA [Suspect]
     Active Substance: PATIROMER
     Indication: HYPERKALAEMIA
     Route: 048
     Dates: start: 201702
  6. DILTIAZEM. [Concomitant]
     Active Substance: DILTIAZEM
  7. SODIUM [Concomitant]
     Active Substance: SODIUM
  8. LOSARTAN. [Concomitant]
     Active Substance: LOSARTAN
  9. NICOTINIC ACID [Concomitant]
     Active Substance: NIACIN
  10. SPIRONOLACTONE. [Concomitant]
     Active Substance: SPIRONOLACTONE

REACTIONS (1)
  - Drug dose omission [Recovered/Resolved]

NARRATIVE: CASE EVENT DATE: 201708
